FAERS Safety Report 6555299-2 (Version None)
Quarter: 2010Q1

REPORT INFORMATION
  Report Type: 
  Country: None (occurrence: None)
  Receive Date: 20100128
  Receipt Date: 20090407
  Transmission Date: 20100710
  Serious: No
  Sender: FDA-Public Use
  Company Number: A0777578A

PATIENT

DRUGS (3)
  1. WELLBUTRIN [Suspect]
     Indication: DRUG USE FOR UNKNOWN INDICATION
     Route: 048
     Dates: start: 20080101
  2. PROZAC [Concomitant]
  3. OTHER MEDICATIONS [Concomitant]

REACTIONS (1)
  - DYSPHEMIA [None]
